FAERS Safety Report 18322864 (Version 1)
Quarter: 2020Q3

REPORT INFORMATION
  Report Type: Spontaneous
  Country: NL (occurrence: NL)
  Receive Date: 20200929
  Receipt Date: 20200929
  Transmission Date: 20201103
  Serious: Yes (Other)
  Sender: FDA-Public Use
  Company Number: NL-SUN PHARMACEUTICAL INDUSTRIES LTD-2020R1-262048

PATIENT
  Age: 46 Year
  Sex: Female

DRUGS (2)
  1. DIGOXIN. [Suspect]
     Active Substance: DIGOXIN
     Indication: PRODUCT USED FOR UNKNOWN INDICATION
     Route: 065
  2. ALOE BARBADENSIS [Interacting]
     Active Substance: ALOE VERA LEAF
     Indication: BLOOD POTASSIUM INCREASED
     Route: 065

REACTIONS (2)
  - Drug interaction [Unknown]
  - Arrhythmia [Unknown]
